FAERS Safety Report 20949984 (Version 1)
Quarter: 2022Q2

REPORT INFORMATION
  Report Type: Spontaneous
  Country: US (occurrence: None)
  Receive Date: 20220610
  Receipt Date: 20220610
  Transmission Date: 20220721
  Serious: No
  Sender: FDA-Public Use
  Company Number: None

PATIENT
  Sex: Male
  Weight: 71.2 kg

DRUGS (5)
  1. SUNITINIB MALATE [Suspect]
     Active Substance: SUNITINIB MALATE
     Indication: Renal cancer
     Dosage: 25 MG DAILY 14/7 PO?
     Route: 048
  2. NORVASC [Concomitant]
     Active Substance: AMLODIPINE BESYLATE
  3. SINEMET [Concomitant]
     Active Substance: CARBIDOPA\LEVODOPA
  4. XGEVA [Concomitant]
     Active Substance: DENOSUMAB
  5. VALACYCLOVIR HYDROCHLORIDE [Concomitant]
     Active Substance: VALACYCLOVIR HYDROCHLORIDE

REACTIONS (1)
  - Loss of therapeutic response [None]
